FAERS Safety Report 19904750 (Version 2)
Quarter: 2021Q4

REPORT INFORMATION
  Report Type: Report from Study
  Country: US (occurrence: US)
  Receive Date: 20211001
  Receipt Date: 20211220
  Transmission Date: 20220303
  Serious: Yes (Other)
  Sender: FDA-Public Use
  Company Number: US-ABBVIE-21K-163-4063517-00

PATIENT
  Sex: Male

DRUGS (3)
  1. HUMIRA [Suspect]
     Active Substance: ADALIMUMAB
     Indication: Colitis ulcerative
     Dosage: DAY 1
     Route: 058
     Dates: start: 20210827, end: 20210827
  2. HUMIRA [Suspect]
     Active Substance: ADALIMUMAB
     Dosage: DAY 15
     Route: 058
  3. HUMIRA [Suspect]
     Active Substance: ADALIMUMAB
     Indication: Colitis ulcerative
     Dosage: DAY 29
     Route: 058

REACTIONS (9)
  - Hernia [Unknown]
  - Constipation [Not Recovered/Not Resolved]
  - Fear [Unknown]
  - Inflammatory marker decreased [Unknown]
  - Frequent bowel movements [Recovered/Resolved]
  - Insomnia [Not Recovered/Not Resolved]
  - Anxiety [Unknown]
  - Abdominal distension [Not Recovered/Not Resolved]
  - Defaecation urgency [Not Recovered/Not Resolved]

NARRATIVE: CASE EVENT DATE: 20210101
